FAERS Safety Report 8944138 (Version 1)
Quarter: 2012Q4

REPORT INFORMATION
  Report Type: 
  Country: US (occurrence: US)
  Receive Date: 20121204
  Receipt Date: 20121204
  Transmission Date: 20130627
  Serious: No
  Sender: FDA-Public Use
  Company Number: US-AMGEN-USASP2012068799

PATIENT
  Age: 61 Year
  Sex: Female

DRUGS (1)
  1. ENBREL [Suspect]
     Indication: RHEUMATOID ARTHRITIS
     Dosage: 50mg, weekly
     Dates: start: 201104, end: 20121007

REACTIONS (6)
  - Cystitis [Recovered/Resolved]
  - Arthritis [Not Recovered/Not Resolved]
  - Arthralgia [Not Recovered/Not Resolved]
  - Herpes zoster [Recovered/Resolved]
  - Dizziness [Not Recovered/Not Resolved]
  - Sinusitis [Not Recovered/Not Resolved]
